FAERS Safety Report 9586057 (Version 3)
Quarter: 2014Q1

REPORT INFORMATION
  Report Type: Report from Study
  Country: JP (occurrence: JP)
  Receive Date: 20131003
  Receipt Date: 20140303
  Transmission Date: 20141002
  Serious: Yes (Death, Disabling)
  Sender: FDA-Public Use
  Company Number: JP-JNJFOC-20130917375

PATIENT
  Age: 75 Year
  Sex: Male
  Weight: 49 kg

DRUGS (11)
  1. ONEDURO [Suspect]
     Indication: CANCER PAIN
     Route: 062
     Dates: start: 20130419
  2. ONEDURO [Suspect]
     Indication: CANCER PAIN
     Route: 062
     Dates: start: 20130410, end: 20130418
  3. DIGOXIN [Concomitant]
     Indication: ATRIAL FIBRILLATION
     Route: 048
     Dates: end: 20130511
  4. OXYCODONE HYDROCHLORIDE HYDRATE [Concomitant]
     Indication: CANCER PAIN
     Dosage: RESCUE DOSE
     Route: 048
     Dates: start: 20130420, end: 20130420
  5. OXYCODONE HYDROCHLORIDE HYDRATE [Concomitant]
     Indication: CANCER PAIN
     Dosage: RESCUE DOSE
     Route: 048
     Dates: start: 20130418, end: 20130418
  6. REMINYL [Concomitant]
     Indication: DEMENTIA ALZHEIMER^S TYPE
     Route: 048
     Dates: end: 20130511
  7. ALISRYTHM [Concomitant]
     Indication: ATRIAL FIBRILLATION
     Route: 065
     Dates: end: 20130511
  8. WARFARIN POTASSIUM [Concomitant]
     Indication: ATRIAL FIBRILLATION
     Route: 048
     Dates: end: 20130508
  9. MANAMIN GA [Concomitant]
     Indication: GASTRITIS
     Route: 048
     Dates: end: 20130511
  10. REBAMIPIDE [Concomitant]
     Indication: GASTRITIS
     Route: 048
     Dates: end: 20130511
  11. CALFINA [Concomitant]
     Indication: OSTEOPOROSIS
     Route: 048
     Dates: end: 20130511

REACTIONS (3)
  - Gastric cancer [Fatal]
  - Anaemia [Not Recovered/Not Resolved]
  - Drug intolerance [Unknown]
